FAERS Safety Report 4706230-3 (Version None)
Quarter: 2005Q2

REPORT INFORMATION
  Report Type: 
  Country: None (occurrence: None)
  Receive Date: 20050628
  Receipt Date: 20041221
  Transmission Date: 20051028
  Serious: No
  Sender: FDA-Public Use
  Company Number: 04H-163-0284387-00

PATIENT
  Age: 36 Year
  Sex: Female

DRUGS (4)
  1. QUELICIN [Suspect]
     Indication: ANAESTHESIA
     Dosage: 5 CC, ONCE (RIGHT BEFORE INTUBATION), INTRAVENOUS
     Route: 042
     Dates: start: 20041220, end: 20041220
  2. MIDAZOLAM HYDROCHLORIDE [Concomitant]
  3. METOCLOPRAMIDE [Concomitant]
  4. BLOOD PRESSURE MEDICATION [Concomitant]

REACTIONS (1)
  - DRUG EFFECT PROLONGED [None]
